FAERS Safety Report 6151988-2 (Version None)
Quarter: 2009Q2

REPORT INFORMATION
  Report Type: 
  Country: None (occurrence: None)
  Receive Date: 20090408
  Receipt Date: 20090330
  Transmission Date: 20091009
  Serious: Yes (Hospitalization)
  Sender: FDA-Public Use
  Company Number: 2009AP001300

PATIENT
  Age: 51 Year
  Sex: Female

DRUGS (13)
  1. CITALOPRAM HYDROBROMIDE [Suspect]
     Indication: DEPRESSION
     Dosage: 20 MG; QD PO, 10 MG; PO; QD
     Route: 048
     Dates: start: 20090213, end: 20090217
  2. CITALOPRAM HYDROBROMIDE [Suspect]
     Indication: DEPRESSION
     Dosage: 20 MG; QD PO, 10 MG; PO; QD
     Route: 048
     Dates: start: 20090213, end: 20090218
  3. CITALOPRAM HYDROBROMIDE [Suspect]
     Indication: DEPRESSION
     Dosage: 20 MG; QD PO, 10 MG; PO; QD
     Route: 048
     Dates: start: 20090217, end: 20090218
  4. TRIAMCINOLONE ACETONIDE [Concomitant]
  5. BECLOMETHASONE DIPROPIONATE [Concomitant]
  6. BENDROFLUMETHIAZIDE (BENDROFLUMETHIAZIDE) [Concomitant]
  7. DICLOFENAC (DICLOFENAC) [Concomitant]
  8. IRBESARTAN [Concomitant]
  9. LIDOCAINE [Concomitant]
  10. OMEPRAZOLE [Concomitant]
  11. SALBUTAMOL (SALBUTAMOL) [Concomitant]
  12. BENZYLPENICILLIN (BENZYLPENICILLIN) [Concomitant]
  13. PROPRANOLOL [Concomitant]

REACTIONS (4)
  - HEADACHE [None]
  - MIDDLE INSOMNIA [None]
  - VISION BLURRED [None]
  - VOMITING [None]
